FAERS Safety Report 8297077-2 (Version None)
Quarter: 2012Q1

REPORT INFORMATION
  Report Type: 
  Country: None (occurrence: None)
  Receive Date: 20120322
  Receipt Date: 20120110
  Transmission Date: 20120608
  Serious: Yes (Hospitalization)
  Sender: FDA-Public Use
  Company Number: UTC-014431

PATIENT
  Age: 65 Year
  Sex: Male
  Weight: 92.2 kg

DRUGS (1)
  1. TYVASO [Suspect]
     Indication: PULMONARY ARTERIAL HYPERTENSION
     Dosage: 216 MCG (54 MCG, 4 IN 1 D), INHALATION
     Route: 055
     Dates: start: 20111028

REACTIONS (3)
  - FATIGUE [None]
  - PNEUMONIA [None]
  - DYSPNOEA [None]
